FAERS Safety Report 4664207-0 (Version None)
Quarter: 2005Q2

REPORT INFORMATION
  Report Type: 
  Country: None (occurrence: None)
  Receive Date: 20050516
  Receipt Date: 20050516
  Transmission Date: 20051028
  Serious: Yes (Life-Threatening, Hospitalization)
  Sender: FDA-Public Use
  Company Number: None

PATIENT
  Age: 64 Year
  Sex: Male
  Weight: 64 kg

DRUGS (5)
  1. NAPROXEN [Suspect]
     Indication: NASOPHARYNGITIS
     Dosage: OTC PRODUCT
     Dates: start: 20050310
  2. LISINOPRIL [Suspect]
     Indication: HYPERTENSION
     Dosage: 10 MG DAILY
     Dates: start: 20040301
  3. RANITIDINE HCL [Concomitant]
  4. ASPIRIN [Concomitant]
  5. HCTZ 12.5/LISINOPRIL [Concomitant]

REACTIONS (2)
  - ANGIONEUROTIC OEDEMA [None]
  - SWELLING FACE [None]
